FAERS Safety Report 8047398-3 (Version None)
Quarter: 2012Q1

REPORT INFORMATION
  Report Type: 
  Country: None (occurrence: None)
  Receive Date: 20120116
  Receipt Date: 20120103
  Transmission Date: 20120608
  Serious: Yes (Other)
  Sender: FDA-Public Use
  Company Number: BR-AMGEN-BRACT2012001225

PATIENT
  Age: 57 Year
  Sex: Male
  Weight: 101 kg

DRUGS (6)
  1. MABTHERA [Concomitant]
     Dosage: UNK
  2. OMEPRAZOLE [Concomitant]
     Dosage: UNK
  3. CAPTOPRIL [Concomitant]
     Dosage: UNK
  4. ATIVAN [Concomitant]
     Dosage: UNK
  5. ENBREL [Suspect]
     Indication: PSORIATIC ARTHROPATHY
     Dosage: 25 MG, 2 TIMES/WK
     Route: 058
     Dates: start: 20091125, end: 20110401
  6. NPH ILETIN I (BEEF-PORK) [Concomitant]
     Dosage: UNK

REACTIONS (1)
  - HEPATIC ENZYME ABNORMAL [None]
